FAERS Safety Report 5046127-5 (Version None)
Quarter: 2006Q3

REPORT INFORMATION
  Report Type: 
  Country: None (occurrence: None)
  Receive Date: 20060707
  Receipt Date: 20060707
  Transmission Date: 20061208
  Serious: Yes (Hospitalization)
  Sender: FDA-Public Use
  Company Number: None

PATIENT
  Sex: Male
  Weight: 94 kg

DRUGS (16)
  1. BEVACIZUMAB (GENENTECH) [Suspect]
     Indication: GLIOBLASTOMA MULTIFORME
     Dosage: 947MG  QOW   IV
     Route: 042
     Dates: start: 20060518
  2. BEVACIZUMAB (GENENTECH) [Suspect]
     Indication: GLIOBLASTOMA MULTIFORME
     Dosage: 947MG  QOW   IV
     Route: 042
     Dates: start: 20060601
  3. BEVACIZUMAB (GENENTECH) [Suspect]
     Indication: GLIOBLASTOMA MULTIFORME
     Dosage: 947MG  QOW   IV
     Route: 042
     Dates: start: 20060615
  4. BEVACIZUMAB (GENENTECH) [Suspect]
     Indication: GLIOBLASTOMA MULTIFORME
     Dosage: 947MG  QOW   IV
     Route: 042
     Dates: start: 20060629
  5. IRINOTECAN (PFIZER) [Suspect]
     Indication: GLIOBLASTOMA MULTIFORME
     Dosage: 727MG  QOW   IV
     Route: 042
     Dates: start: 20060518
  6. IRINOTECAN (PFIZER) [Suspect]
     Indication: GLIOBLASTOMA MULTIFORME
     Dosage: 727MG  QOW   IV
     Route: 042
     Dates: start: 20060601
  7. IRINOTECAN (PFIZER) [Suspect]
     Indication: GLIOBLASTOMA MULTIFORME
     Dosage: 727MG  QOW   IV
     Route: 042
     Dates: start: 20060615
  8. IRINOTECAN (PFIZER) [Suspect]
     Indication: GLIOBLASTOMA MULTIFORME
     Dosage: 727MG  QOW   IV
     Route: 042
     Dates: start: 20060629
  9. DILANTIN [Concomitant]
  10. LAMICTAL [Concomitant]
  11. TOPAMAX [Concomitant]
  12. LEXAPRO [Concomitant]
  13. AMBIEN [Concomitant]
  14. TYLENOL (CAPLET) [Concomitant]
  15. PERCOCET [Concomitant]
  16. IMODIUM [Concomitant]

REACTIONS (6)
  - BACTERIAL INFECTION [None]
  - CATHETER RELATED INFECTION [None]
  - DIARRHOEA [None]
  - PLATELET COUNT DECREASED [None]
  - PYREXIA [None]
  - SEPSIS [None]
